FAERS Safety Report 8900276 (Version 3)
Quarter: 2013Q3

REPORT INFORMATION
  Report Type: Spontaneous
  Country: US (occurrence: US)
  Receive Date: 20121109
  Receipt Date: 20130723
  Transmission Date: 20140515
  Serious: Yes (Other)
  Sender: FDA-Public Use
  Company Number: US-JNJFOC-20111203830

PATIENT
  Sex: Female

DRUGS (9)
  1. TOPAMAX [Suspect]
     Indication: EPILEPSY
     Route: 048
     Dates: start: 20080708, end: 20090305
  2. TOPAMAX [Suspect]
     Indication: EPILEPSY
     Route: 048
  3. TOPAMAX [Suspect]
     Indication: CONVULSION
     Route: 048
  4. TOPAMAX [Suspect]
     Indication: CONVULSION
     Route: 048
     Dates: start: 20080708, end: 20090305
  5. VIMPAT [Suspect]
     Indication: CONVULSION
     Route: 065
  6. KEPPRA [Suspect]
     Indication: CONVULSION
     Route: 065
  7. CETIRIZINE HYDROCHLORIDE [Suspect]
     Indication: PRODUCT USED FOR UNKNOWN INDICATION
     Route: 048
  8. FOLIC ACID [Concomitant]
     Indication: PREGNANCY
     Route: 065
  9. ALL OTHER THERAPEUTIC PRODUCT [Concomitant]
     Indication: PRODUCT USED FOR UNKNOWN INDICATION
     Route: 048

REACTIONS (3)
  - Exposure during pregnancy [Recovered/Resolved]
  - Breech presentation [Recovered/Resolved]
  - Emotional disorder [Unknown]
